FAERS Safety Report 5162247-9 (Version None)
Quarter: 2006Q4

REPORT INFORMATION
  Report Type: 
  Country: None (occurrence: None)
  Receive Date: 20061121
  Receipt Date: 20061113
  Transmission Date: 20070319
  Serious: Yes (Hospitalization, Other)
  Sender: FDA-Public Use
  Company Number: HQWYE327222JUL04

PATIENT
  Age: 58 Year
  Sex: Female
  Weight: 82.17 kg

DRUGS (3)
  1. PREMPRO [Suspect]
  2. PREMARIN [Suspect]
  3. PROVERA [Suspect]

REACTIONS (11)
  - ACUTE MYELOID LEUKAEMIA [None]
  - B-CELL LYMPHOMA [None]
  - BREAST CANCER METASTATIC [None]
  - BREAST CANCER RECURRENT [None]
  - METASTASES TO LIVER [None]
  - METASTASES TO LUNG [None]
  - METASTASES TO LYMPH NODES [None]
  - MYELODYSPLASTIC SYNDROME [None]
  - OESTROGEN RECEPTOR ASSAY POSITIVE [None]
  - OVARIAN CANCER METASTATIC [None]
  - PROGESTERONE RECEPTOR ASSAY POSITIVE [None]
